FAERS Safety Report 9163033 (Version 1)
Quarter: 2013Q1

REPORT INFORMATION
  Report Type: Spontaneous
  Country: US (occurrence: None)
  Receive Date: 20130313
  Receipt Date: 20130313
  Transmission Date: 20140127
  Serious: Yes (Other)
  Sender: FDA-Public Use
  Company Number: None

PATIENT
  Age: 30 Year
  Sex: Female
  Weight: 56.7 kg

DRUGS (1)
  1. CAFFEINE [Suspect]
     Route: 048
     Dates: start: 20130108, end: 20130309

REACTIONS (2)
  - Headache [None]
  - Vomiting [None]
